FAERS Safety Report 5931436-5 (Version None)
Quarter: 2008Q4

REPORT INFORMATION
  Report Type: 
  Country: None (occurrence: None)
  Receive Date: 20081027
  Receipt Date: 20081016
  Transmission Date: 20090506
  Serious: Yes (Other)
  Sender: FDA-Public Use
  Company Number: US-BAXTER-2008BH011298

PATIENT
  Age: 52 Year
  Sex: Female

DRUGS (4)
  1. ACYCLOVIR [Suspect]
     Indication: ORAL HERPES
     Route: 042
  2. ACYCLOVIR [Suspect]
     Indication: HERPES SIMPLEX
     Route: 042
  3. VANCOMYCIN HYDROCHLORIDE [Concomitant]
     Indication: PNEUMONIA STAPHYLOCOCCAL
     Dosage: DOSE UNIT:UNKNOWN
     Route: 042
  4. LINEZOLID [Concomitant]
     Indication: PNEUMONIA STAPHYLOCOCCAL
     Dosage: DOSE UNIT:UNKNOWN
     Route: 065

REACTIONS (1)
  - NEPHROPATHY TOXIC [None]
